FAERS Safety Report 19039437 (Version 2)
Quarter: 2021Q2

REPORT INFORMATION
  Report Type: Spontaneous
  Country: US (occurrence: US)
  Receive Date: 20210322
  Receipt Date: 20210402
  Transmission Date: 20210717
  Serious: Yes (Life-Threatening, Hospitalization)
  Sender: FDA-Public Use
  Company Number: US-ASTRAZENECA-2021A164937

PATIENT
  Age: 21375 Day
  Sex: Female
  Weight: 87.1 kg

DRUGS (3)
  1. BYDUREON BCISE [Suspect]
     Active Substance: EXENATIDE
     Indication: BLOOD GLUCOSE ABNORMAL
     Route: 058
     Dates: start: 2019, end: 20210111
  2. BYDUREON BCISE [Suspect]
     Active Substance: EXENATIDE
     Indication: BLOOD GLUCOSE ABNORMAL
     Route: 058
     Dates: start: 20210208
  3. INSULIN [Concomitant]
     Active Substance: INSULIN NOS

REACTIONS (14)
  - COVID-19 [Unknown]
  - Bronchial secretion retention [Unknown]
  - Dysphonia [Unknown]
  - Device malfunction [Unknown]
  - Loss of personal independence in daily activities [Recovered/Resolved]
  - Oxygen saturation decreased [Unknown]
  - Pulmonary oedema [Unknown]
  - Confusional state [Unknown]
  - Product dose omission issue [Unknown]
  - Incorrect dose administered by product [Unknown]
  - Condition aggravated [Unknown]
  - Pyrexia [Unknown]
  - Device leakage [Unknown]
  - Memory impairment [Unknown]

NARRATIVE: CASE EVENT DATE: 20210115
